FAERS Safety Report 9515269 (Version 2)
Quarter: 2013Q4

REPORT INFORMATION
  Report Type: Spontaneous
  Country: US (occurrence: US)
  Receive Date: 20130911
  Receipt Date: 20131003
  Transmission Date: 20140711
  Serious: No
  Sender: FDA-Public Use
  Company Number: US-TEVA-431352USA

PATIENT
  Sex: Female

DRUGS (5)
  1. CLARAVIS [Suspect]
     Indication: ACNE
     Dosage: 30 MILLIGRAM DAILY;
     Route: 048
     Dates: start: 20130729
  2. DEPO PROVERA [Concomitant]
     Indication: CONTRACEPTION
     Dates: start: 201306
  3. MULTIVITAMINS [Concomitant]
  4. ALLEGRA [Concomitant]
  5. BIOTIN [Concomitant]

REACTIONS (2)
  - Hair growth abnormal [Unknown]
  - Oligomenorrhoea [Unknown]
